FAERS Safety Report 9219642 (Version 2)
Quarter: 2013Q2

REPORT INFORMATION
  Report Type: Spontaneous
  Country: CO (occurrence: CO)
  Receive Date: 20130409
  Receipt Date: 20130411
  Transmission Date: 20140414
  Serious: Yes (Hospitalization)
  Sender: FDA-Public Use
  Company Number: CO-009507513-1304COL003718

PATIENT
  Age: 68 Year
  Sex: Female

DRUGS (1)
  1. PEG-INTRON [Suspect]
     Indication: HEPATITIS C
     Dosage: 100 MICROGRAM, UNK
     Dates: start: 20130227, end: 20130404

REACTIONS (3)
  - Anaemia [Unknown]
  - Urinary tract infection [Unknown]
  - Neutropenia [Unknown]
